FAERS Safety Report 8445361-1 (Version None)
Quarter: 2012Q2

REPORT INFORMATION
  Report Type: 
  Country: None (occurrence: None)
  Receive Date: 20120618
  Receipt Date: 20120330
  Transmission Date: 20120825
  Serious: No
  Sender: FDA-Public Use
  Company Number: US-TEVA-331194USA

PATIENT
  Sex: Female
  Weight: 46.308 kg

DRUGS (5)
  1. TIZANIDINE HYDROCHLORIDE [Concomitant]
     Indication: MUSCLE RELAXANT THERAPY
     Dosage: 8 MILLIGRAM;
     Route: 048
  2. FENTORA [Suspect]
     Indication: BACK PAIN
     Dosage: 4800 MICROGRAM;
     Route: 002
  3. CETIRIZINE HYDROCHLORIDE [Concomitant]
     Indication: HYPERSENSITIVITY
     Dosage: 10 MILLIGRAM;
     Route: 048
  4. TRAZODONE HCL [Concomitant]
     Indication: INITIAL INSOMNIA
     Route: 048
  5. TEMAZEPAM [Concomitant]
     Indication: INSOMNIA
     Route: 048
     Dates: start: 20110101

REACTIONS (4)
  - DRUG PRESCRIBING ERROR [None]
  - DIARRHOEA [None]
  - NAUSEA [None]
  - OFF LABEL USE [None]
